FAERS Safety Report 12961716 (Version 1)
Quarter: 2016Q4

REPORT INFORMATION
  Report Type: Spontaneous
  Country: DE (occurrence: DE)
  Receive Date: 20161121
  Receipt Date: 20161121
  Transmission Date: 20170207
  Serious: Yes (Hospitalization)
  Sender: FDA-Public Use
  Company Number: DE-JNJFOC-20161118925

PATIENT
  Age: 28 Year
  Sex: Male

DRUGS (1)
  1. XARELTO [Suspect]
     Active Substance: RIVAROXABAN
     Indication: POST PROCEDURAL PULMONARY EMBOLISM
     Route: 048

REACTIONS (2)
  - Toxicity to various agents [Recovered/Resolved]
  - Adverse event [Unknown]
